FAERS Safety Report 15939999 (Version 2)
Quarter: 2019Q1

REPORT INFORMATION
  Report Type: Report from Study
  Country: IT (occurrence: IT)
  Receive Date: 20190208
  Receipt Date: 20190304
  Transmission Date: 20190417
  Serious: Yes (Hospitalization, Other)
  Sender: FDA-Public Use
  Company Number: IT-INCYTE CORPORATION-2018IN007044

PATIENT

DRUGS (5)
  1. JAKAVI [Suspect]
     Active Substance: RUXOLITINIB
     Dosage: 10 OT, UNK
     Route: 065
     Dates: start: 20181105
  2. JAKAVI [Suspect]
     Active Substance: RUXOLITINIB
     Indication: MYELOFIBROSIS
     Dosage: 40 OT, UNK
     Route: 065
     Dates: start: 20170615, end: 20171121
  3. JAKAVI [Suspect]
     Active Substance: RUXOLITINIB
     Dosage: 30 OT, UNK
     Route: 065
     Dates: start: 20171122, end: 20171217
  4. JAKAVI [Suspect]
     Active Substance: RUXOLITINIB
     Dosage: 30 OT, UNK
     Route: 065
     Dates: start: 20180907, end: 20181104
  5. JAKAVI [Suspect]
     Active Substance: RUXOLITINIB
     Dosage: 40 OT, UNK
     Route: 065
     Dates: start: 20171218, end: 20180906

REACTIONS (7)
  - Atrial fibrillation [Recovering/Resolving]
  - Atrial flutter [Unknown]
  - Myocardial ischaemia [Not Recovered/Not Resolved]
  - Red blood cell count decreased [Unknown]
  - Thrombocytopenia [Not Recovered/Not Resolved]
  - White blood cell count decreased [Unknown]
  - Anaemia [Unknown]

NARRATIVE: CASE EVENT DATE: 20170807
